FAERS Safety Report 7006542-7 (Version None)
Quarter: 2010Q3

REPORT INFORMATION
  Report Type: 
  Country: None (occurrence: None)
  Receive Date: 20100921
  Receipt Date: 20100921
  Transmission Date: 20110219
  Serious: Yes (Life-Threatening, Hospitalization)
  Sender: FDA-Public Use
  Company Number: None

PATIENT
  Sex: Male
  Weight: 83.9154 kg

DRUGS (6)
  1. TENOFOVIR DISOPROXIL FUMARATE [Suspect]
  2. VIREAD [Suspect]
  3. REALTEGRAVIR -RAL- [Suspect]
  4. ISENTRESS [Suspect]
  5. ZIDOVUDINE [Suspect]
  6. RETROVIR [Suspect]

REACTIONS (5)
  - DIZZINESS [None]
  - HEPATIC ENZYME INCREASED [None]
  - PLATELET COUNT DECREASED [None]
  - SPLENOMEGALY [None]
  - VARICES OESOPHAGEAL [None]
